FAERS Safety Report 10161388 (Version 2)
Quarter: 2014Q2

REPORT INFORMATION
  Report Type: Report from Study
  Country: JP (occurrence: JP)
  Receive Date: 20140509
  Receipt Date: 20140620
  Transmission Date: 20141212
  Serious: Yes (Death, Hospitalization)
  Sender: FDA-Public Use
  Company Number: JP-AMGEN-JPNCT2014033865

PATIENT
  Age: 67 Year
  Sex: Female
  Weight: 46 kg

DRUGS (13)
  1. DARBEPOETIN ALFA [Suspect]
     Indication: NEPHROGENIC ANAEMIA
     Dosage: 30 MUG, UNK
     Route: 058
     Dates: start: 20110323, end: 20130702
  2. PRAZAXA [Concomitant]
     Dosage: UNK
     Route: 048
  3. NESINA [Concomitant]
     Dosage: UNK
     Route: 048
  4. DAITALIC [Concomitant]
     Dosage: UNK
     Route: 048
  5. SELARA [Concomitant]
     Dosage: UNK
     Route: 048
  6. LASIX                              /00032601/ [Concomitant]
     Dosage: UNK
     Route: 048
  7. MAINTATE [Concomitant]
     Dosage: UNK
     Route: 048
  8. PIMOBENDAN [Concomitant]
     Dosage: UNK
     Route: 048
  9. TANATRIL [Concomitant]
     Dosage: UNK
     Route: 048
  10. WARFARIN [Concomitant]
     Dosage: UNK
     Route: 048
  11. NEXIUM                             /01479302/ [Concomitant]
     Dosage: UNK
     Route: 048
  12. TENELIA [Concomitant]
     Dosage: UNK
     Route: 048
  13. GLUBES [Concomitant]
     Dosage: UNK
     Route: 048

REACTIONS (2)
  - Gastric cancer [Fatal]
  - Haemorrhoidal haemorrhage [Recovered/Resolved]
